FAERS Safety Report 8276602-1 (Version None)
Quarter: 2012Q2

REPORT INFORMATION
  Report Type: 
  Country: None (occurrence: None)
  Receive Date: 20120412
  Receipt Date: 20120404
  Transmission Date: 20120825
  Serious: Yes (Hospitalization)
  Sender: FDA-Public Use
  Company Number: US-BAYER-2011-114317

PATIENT
  Age: 22 Year
  Sex: Female
  Weight: 49.887 kg

DRUGS (5)
  1. NEOCON [Concomitant]
     Dosage: UNK
     Dates: start: 20100101
  2. YAZ [Suspect]
     Indication: MENSTRUAL CYCLE MANAGEMENT
     Dosage: UNK
     Dates: start: 20070410, end: 20100501
  3. YAZ [Suspect]
     Indication: CONTRACEPTION
     Dosage: UNK
     Dates: start: 20070410, end: 20100501
  4. JUNEL 1.5/30 [Concomitant]
     Dosage: UNK
     Dates: start: 20100101
  5. NSAID'S [Concomitant]
     Dosage: UNK UNK, AS NEEDED

REACTIONS (4)
  - CHOLELITHIASIS [None]
  - ABDOMINAL PAIN [None]
  - VOMITING [None]
  - CHOLECYSTITIS CHRONIC [None]
